FAERS Safety Report 24356744 (Version 2)
Quarter: 2024Q4

REPORT INFORMATION
  Report Type: Spontaneous
  Country: NL (occurrence: NL)
  Receive Date: 20240924
  Receipt Date: 20241126
  Transmission Date: 20250114
  Serious: Yes (Other)
  Sender: ROCHE
  Company Number: NL-002147023-NVSC2024NL187443

PATIENT
  Age: 34 Year
  Sex: Female

DRUGS (2)
  1. XOLAIR [Suspect]
     Active Substance: OMALIZUMAB
     Indication: Chronic spontaneous urticaria
     Dosage: UNK (ROA:INJECTION)
     Route: 065
     Dates: start: 200101
  2. LEVOCETIRIZINE [Concomitant]
     Active Substance: LEVOCETIRIZINE

REACTIONS (11)
  - Chronic spontaneous urticaria [Unknown]
  - Pruritus [Unknown]
  - Swelling [Unknown]
  - Angioedema [Unknown]
  - Quality of life decreased [Unknown]
  - Therapeutic product effect incomplete [Unknown]
  - Alopecia [Recovering/Resolving]
  - Myalgia [Recovering/Resolving]
  - Arthropathy [Recovering/Resolving]
  - Weight increased [Recovering/Resolving]
  - Fatigue [Recovering/Resolving]
